FAERS Safety Report 8096531-6 (Version None)
Quarter: 2012Q1

REPORT INFORMATION
  Report Type: 
  Country: None (occurrence: None)
  Receive Date: 20120129
  Receipt Date: 20111107
  Transmission Date: 20120608
  Serious: No
  Sender: FDA-Public Use
  Company Number: US-ABBOTT-11P-163-0863459-00

PATIENT
  Sex: Female

DRUGS (17)
  1. PREDNISONE TAB [Concomitant]
     Indication: RHEUMATOID ARTHRITIS
  2. OXYBUTYNIN [Concomitant]
     Indication: INCONTINENCE
  3. COLACE [Concomitant]
     Indication: CONSTIPATION
     Dosage: DAILY PRN
  4. HUMIRA [Suspect]
     Indication: RHEUMATOID ARTHRITIS
     Dates: start: 20110927
  5. FOLIC ACID [Concomitant]
     Indication: VITAMIN SUPPLEMENTATION
  6. HYDROXYCHLOROQUINE SULFATE [Concomitant]
     Indication: RHEUMATOID ARTHRITIS
  7. ISONIAZID [Concomitant]
     Indication: EXPOSURE TO COMMUNICABLE DISEASE
  8. CALCIUM [Concomitant]
     Indication: MINERAL SUPPLEMENTATION
  9. VITAMIN B6 [Concomitant]
     Indication: PRODUCT USED FOR UNKNOWN INDICATION
  10. LIPITOR [Concomitant]
     Indication: BLOOD CHOLESTEROL
  11. MULTI-VITAMINS [Concomitant]
     Indication: VITAMIN SUPPLEMENTATION
     Dosage: DAILY
  12. LIPITOR [Concomitant]
     Indication: PRODUCT USED FOR UNKNOWN INDICATION
  13. METOPROLOL TARTRATE [Concomitant]
     Indication: HYPERTENSION
  14. METHOTREXATE [Concomitant]
     Indication: RHEUMATOID ARTHRITIS
     Route: 048
  15. ASPIRIN [Concomitant]
     Indication: PROPHYLAXIS
  16. HYDROCHLOROTHIAZIDE [Concomitant]
     Indication: HYPERTENSION
  17. LISINOPRIL [Concomitant]
     Indication: HYPERTENSION

REACTIONS (5)
  - INJECTION SITE ERYTHEMA [None]
  - MUSCLE TIGHTNESS [None]
  - INJECTION SITE PRURITUS [None]
  - NASAL CONGESTION [None]
  - INJECTION SITE SWELLING [None]
